FAERS Safety Report 7009444-5 (Version None)
Quarter: 2010Q3

REPORT INFORMATION
  Report Type: 
  Country: None (occurrence: None)
  Receive Date: 20100921
  Receipt Date: 20100902
  Transmission Date: 20110219
  Serious: Yes (Hospitalization)
  Sender: FDA-Public Use
  Company Number: 201003787

PATIENT
  Age: 74 Year
  Sex: Male

DRUGS (15)
  1. ERLOTINIB HYDROCHLORIDE [Suspect]
     Indication: MYELODYSPLASTIC SYNDROME
     Dosage: (150 MG,QD),ORAL
     Route: 048
     Dates: start: 20100316, end: 20100430
  2. DARVOCET-N (PROPACET) [Concomitant]
  3. ESTRADIOL [Concomitant]
  4. CYANOCOBALAMIN [Concomitant]
  5. LUNESTA [Concomitant]
  6. FOLIC ACID [Concomitant]
  7. GABAPENTIN [Concomitant]
  8. LACTOBACILLUS ACIDOPHILUS (LACTOBACILLUS ACIDOPHILUS) [Concomitant]
  9. METOPROLOL (METOPROLOL) OMEPRAZOLE (OMEPRAZOLE) [Concomitant]
  10. PREDNISONE [Concomitant]
  11. SIMVASTATIN [Concomitant]
  12. FLOMAX (MORNIFLUMATH) [Concomitant]
  13. UBIDECARENONE (UBIDECARENONE) [Concomitant]
  14. VANCOMYCIN [Concomitant]
  15. METHOTREXATE [Concomitant]

REACTIONS (3)
  - CHEST X-RAY ABNORMAL [None]
  - PANCYTOPENIA [None]
  - PNEUMONIA [None]
